FAERS Safety Report 16271406 (Version 7)
Quarter: 2020Q2

REPORT INFORMATION
  Report Type: Report from Study
  Country: None (occurrence: US)
  Receive Date: 20190505
  Receipt Date: 20200524
  Transmission Date: 20200713
  Serious: Yes (Hospitalization, Other)
  Sender: FDA-Public Use
  Company Number: US-ABBVIE-19K-163-2765491-00

PATIENT
  Sex: Female

DRUGS (1)
  1. HUMIRA [Suspect]
     Active Substance: ADALIMUMAB
     Indication: RHEUMATOID ARTHRITIS
     Dosage: CITRATE FREE
     Route: 058

REACTIONS (24)
  - Hypertension [Recovering/Resolving]
  - Swelling [Recovering/Resolving]
  - Muscle spasms [Recovered/Resolved]
  - Kidney infection [Recovered/Resolved]
  - Panic attack [Recovering/Resolving]
  - Dyspepsia [Not Recovered/Not Resolved]
  - Pain [Not Recovered/Not Resolved]
  - Carpal tunnel syndrome [Recovered/Resolved]
  - Sleep apnoea syndrome [Recovering/Resolving]
  - Arthralgia [Not Recovered/Not Resolved]
  - Nasopharyngitis [Recovered/Resolved]
  - Tunnel vision [Unknown]
  - Urinary tract infection [Recovered/Resolved]
  - Device physical property issue [Not Recovered/Not Resolved]
  - Parkinson^s disease [Not Recovered/Not Resolved]
  - Blood pressure decreased [Unknown]
  - Fatigue [Unknown]
  - Carpal tunnel syndrome [Not Recovered/Not Resolved]
  - Skin discolouration [Recovering/Resolving]
  - Syncope [Recovering/Resolving]
  - Intervertebral disc degeneration [Unknown]
  - Post-traumatic stress disorder [Recovering/Resolving]
  - Attention deficit hyperactivity disorder [Not Recovered/Not Resolved]
  - Cardiovascular disorder [Recovering/Resolving]

NARRATIVE: CASE EVENT DATE: 2018
